FAERS Safety Report 18117990 (Version 1)
Quarter: 2020Q3

REPORT INFORMATION
  Report Type: Spontaneous
  Country: US (occurrence: US)
  Receive Date: 20200805
  Receipt Date: 20200805
  Transmission Date: 20201103
  Serious: No
  Sender: FDA-Public Use
  Company Number: None

PATIENT
  Sex: Male

DRUGS (1)
  1. SUPERFY ANTIBACTERIAL WIPES HAND SANITIZER [BENZALKONIUM CHLORIDE\DIDECYLDIMONIUM CHLORIDE] [Suspect]
     Active Substance: BENZALKONIUM CHLORIDE\DIDECYLDIMONIUM CHLORIDE
     Indication: PERSONAL HYGIENE
     Dates: start: 20200729, end: 20200729

REACTIONS (3)
  - Product use complaint [None]
  - Packaging design issue [None]
  - Physical product label issue [None]

NARRATIVE: CASE EVENT DATE: 20200805
